FAERS Safety Report 8983024 (Version 1)
Quarter: 2012Q4

REPORT INFORMATION
  Report Type: 
  Country: DE (occurrence: DE)
  Receive Date: 20121224
  Receipt Date: 20121224
  Transmission Date: 20130627
  Serious: Yes (Other)
  Sender: FDA-Public Use
  Company Number: PHHY2012DE118181

PATIENT
  Sex: Female
  Weight: 77 kg

DRUGS (6)
  1. FLUVASTATIN [Suspect]
     Indication: MYALGIA
     Dosage: 1 DF, UNK
     Route: 048
     Dates: start: 201109
  2. ATORVASTATIN [Suspect]
     Dosage: 1 DF, UNK
     Route: 048
     Dates: start: 201205
  3. BEZAFIBRATE [Suspect]
     Dosage: 1 DF, UNK
     Route: 048
     Dates: start: 201204
  4. INEGY [Suspect]
     Indication: MYALGIA
     Dosage: 1 DF, UNK
     Route: 048
     Dates: start: 201108
  5. TREDAPTIVE [Suspect]
     Indication: ABDOMINAL PAIN UPPER
     Dosage: 1 DF, UNK
     Route: 048
     Dates: start: 201209
  6. EZETROL [Suspect]
     Indication: ABDOMINAL PAIN UPPER
     Dosage: 1 DF, UNK
     Route: 048
     Dates: start: 201209

REACTIONS (3)
  - Gamma-glutamyltransferase increased [Recovered/Resolved]
  - Gastrointestinal disorder [Recovered/Resolved]
  - Muscle disorder [Recovered/Resolved]
